FAERS Safety Report 9846580 (Version 1)
Quarter: 2014Q1

REPORT INFORMATION
  Report Type: Spontaneous
  Country: IN (occurrence: None)
  Receive Date: 20140122
  Receipt Date: 20140122
  Transmission Date: 20141002
  Serious: Yes (Hospitalization, Other)
  Sender: FDA-Public Use
  Company Number: 2014/001

PATIENT
  Age: 56 Year
  Sex: Male

DRUGS (1)
  1. LEVETIRACETAM (NO PREF. NAME) [Suspect]
     Indication: STATUS EPILEPTICUS
     Route: 048

REACTIONS (1)
  - Toxic encephalopathy [None]
